FAERS Safety Report 8063280-X (Version None)
Quarter: 2012Q1

REPORT INFORMATION
  Report Type: 
  Country: None (occurrence: None)
  Receive Date: 20120123
  Receipt Date: 20120119
  Transmission Date: 20120608
  Serious: Yes (Hospitalization)
  Sender: FDA-Public Use
  Company Number: PHHY2012KR004885

PATIENT
  Sex: Female

DRUGS (1)
  1. EXJADE [Suspect]
     Indication: IRON OVERLOAD
     Dosage: UNK UKN, UNK
     Route: 048
     Dates: start: 20091211

REACTIONS (4)
  - VOMITING [None]
  - WEIGHT DECREASED [None]
  - DYSPEPSIA [None]
  - CARDIAC DISORDER [None]
